FAERS Safety Report 15844564 (Version 1)
Quarter: 2019Q1

REPORT INFORMATION
  Report Type: Spontaneous
  Country: US (occurrence: US)
  Receive Date: 20190118
  Receipt Date: 20190118
  Transmission Date: 20190417
  Serious: Yes (Hospitalization)
  Sender: FDA-Public Use
  Company Number: US-OPTINOSE US, INC.-US-2019OPT000033

PATIENT
  Age: 48 Year
  Sex: Female

DRUGS (1)
  1. XHANCE [Suspect]
     Active Substance: FLUTICASONE PROPIONATE
     Indication: NASAL POLYPS
     Dosage: 372 ?G, BID (2 SPRAYS EACH NOSTRIL BID)
     Route: 045

REACTIONS (2)
  - Multiple sclerosis [Unknown]
  - Optic neuritis [Unknown]
